FAERS Safety Report 14416787 (Version 1)
Quarter: 2018Q1

REPORT INFORMATION
  Report Type: Spontaneous
  Country: US (occurrence: US)
  Receive Date: 20180119
  Receipt Date: 20180119
  Transmission Date: 20180509
  Serious: Yes (Hospitalization)
  Sender: FDA-Public Use
  Company Number: None

PATIENT
  Age: 85 Year
  Sex: Male

DRUGS (23)
  1. LORAZAPAM [Concomitant]
     Active Substance: LORAZEPAM
  2. RANOLAZINE. [Concomitant]
     Active Substance: RANOLAZINE
  3. FLUTICASONE. [Concomitant]
     Active Substance: FLUTICASONE
  4. WARFARIN [Concomitant]
     Active Substance: WARFARIN
  5. FEXOFENADINE [Concomitant]
     Active Substance: FEXOFENADINE\FEXOFENADINE HYDROCHLORIDE
  6. ENOXAPARIN [Suspect]
     Active Substance: ENOXAPARIN
     Route: 058
  7. ATORVASTATIN [Concomitant]
     Active Substance: ATORVASTATIN
  8. ENOXAPARIN [Concomitant]
     Active Substance: ENOXAPARIN
  9. LOSARTAN. [Concomitant]
     Active Substance: LOSARTAN
  10. CITALOPRAM [Concomitant]
     Active Substance: CITALOPRAM HYDROBROMIDE
  11. FINASTERIDE. [Concomitant]
     Active Substance: FINASTERIDE
  12. MULTIVITAMIN [Concomitant]
     Active Substance: VITAMINS
  13. POLYETHYLENE GLYCOL 3350. [Concomitant]
     Active Substance: POLYETHYLENE GLYCOL 3350
  14. CARVEDILOL. [Concomitant]
     Active Substance: CARVEDILOL
  15. CHOLECALCIFEROL [Concomitant]
     Active Substance: CHOLECALCIFEROL
  16. CLOPIDOGREL [Concomitant]
     Active Substance: CLOPIDOGREL BISULFATE
  17. COENZYME Q10 [Concomitant]
     Active Substance: UBIDECARENONE
  18. PANTOPRAZOLE [Concomitant]
     Active Substance: PANTOPRAZOLE
  19. TAMSULOSIN [Concomitant]
     Active Substance: TAMSULOSIN
  20. WARFARIN [Suspect]
     Active Substance: WARFARIN
     Indication: ATRIAL FIBRILLATION
     Route: 048
     Dates: start: 20170811, end: 201708
  21. BISACODYL. [Concomitant]
     Active Substance: BISACODYL
  22. OMEGA 3 FATTY ACIDS [Concomitant]
     Active Substance: OMEGA-3 FATTY ACIDS
  23. PSYLLIUM [Concomitant]
     Active Substance: PLANTAGO SEED

REACTIONS (4)
  - Pain in extremity [None]
  - Haemoglobin decreased [None]
  - Melaena [None]
  - Gastrointestinal haemorrhage [None]

NARRATIVE: CASE EVENT DATE: 20170811
